FAERS Safety Report 7865633-9 (Version None)
Quarter: 2011Q4

REPORT INFORMATION
  Report Type: 
  Country: None (occurrence: None)
  Receive Date: 20111028
  Receipt Date: 20110123
  Transmission Date: 20120403
  Serious: No
  Sender: FDA-Public Use
  Company Number: US-GLAXOSMITHKLINE-A0909609A

PATIENT
  Age: 83 Year
  Sex: Male

DRUGS (3)
  1. COMBIVENT [Suspect]
  2. ADVAIR DISKUS 100/50 [Suspect]
     Route: 055
  3. SPIRIVA [Suspect]
     Dosage: 18MCG PER DAY
     Route: 055

REACTIONS (3)
  - RHINORRHOEA [None]
  - OTORRHOEA [None]
  - HEARING IMPAIRED [None]
